FAERS Safety Report 18335455 (Version 1)
Quarter: 2020Q3

REPORT INFORMATION
  Report Type: Spontaneous
  Country: US (occurrence: US)
  Receive Date: 20200930
  Receipt Date: 20200930
  Transmission Date: 20201103
  Serious: Yes (Hospitalization)
  Sender: FDA-Public Use
  Company Number: None

PATIENT
  Age: 73 Year
  Sex: Male

DRUGS (1)
  1. ATORVASTATIN (ATORVASTATIN CA 80MG TAB) [Suspect]
     Active Substance: ATORVASTATIN
     Indication: HYPERLIPIDAEMIA
     Route: 048
     Dates: start: 20131112, end: 20200428

REACTIONS (7)
  - Asthenia [None]
  - Transient ischaemic attack [None]
  - Rhabdomyolysis [None]
  - Hypoaesthesia [None]
  - Migraine [None]
  - Immune-mediated myositis [None]
  - Hypertriglyceridaemia [None]

NARRATIVE: CASE EVENT DATE: 20200428
